FAERS Safety Report 26157776 (Version 1)
Quarter: 2025Q4

REPORT INFORMATION
  Report Type: Spontaneous
  Country: US (occurrence: None)
  Receive Date: 20251212
  Receipt Date: 20251212
  Transmission Date: 20260119
  Serious: Yes (Disabling)
  Sender: FDA-CTU
  Company Number: None

PATIENT
  Age: 31 Year
  Sex: Female
  Weight: 71.1 kg

DRUGS (3)
  1. DULOXETINE [Suspect]
     Active Substance: DULOXETINE
     Indication: Depression
     Dosage: OTHER QUANTITY : 30 CAPSULE(S);?FREQUENCY : DAILY;
     Route: 048
     Dates: start: 20250714, end: 20251101
  2. VITAMINS [Concomitant]
     Active Substance: VITAMINS
  3. PROBIOTICS NOS [Concomitant]
     Active Substance: PROBIOTICS NOS

REACTIONS (16)
  - Suicidal ideation [None]
  - Depression [None]
  - Anxiety [None]
  - Withdrawal syndrome [None]
  - Electric shock sensation [None]
  - Pyrexia [None]
  - Chills [None]
  - Goitre [None]
  - Pain [None]
  - Night sweats [None]
  - Nausea [None]
  - Diarrhoea [None]
  - Hepatic enzyme increased [None]
  - Reverse tri-iodothyronine increased [None]
  - Arthralgia [None]
  - Confusional state [None]

NARRATIVE: CASE EVENT DATE: 20251015
